FAERS Safety Report 4360639-9 (Version None)
Quarter: 2004Q2

REPORT INFORMATION
  Report Type: 
  Country: None (occurrence: None)
  Receive Date: 20040519
  Receipt Date: 20040519
  Transmission Date: 20050107
  Serious: Yes (Hospitalization)
  Sender: FDA-Public Use
  Company Number: None

PATIENT
  Age: 80 Year
  Sex: Male

DRUGS (9)
  1. DOFETILIDE 0.125 MG PFIZER [Suspect]
     Indication: ARRHYTHMIA
     Dosage: 0.125 MG DAILY ORAL
     Route: 048
     Dates: start: 20030601, end: 20031227
  2. AZITHROMYCIN [Suspect]
     Indication: PNEUMONIA
     Dosage: 500 MG ONCE ORAL
     Route: 048
     Dates: start: 20031226, end: 20031227
  3. MAGNESIUM [Concomitant]
  4. FUROSEMIDE [Concomitant]
  5. PRILOSEC [Concomitant]
  6. METOLAZONE [Concomitant]
  7. PREDNISONE [Concomitant]
  8. LISINOPRIL [Concomitant]
  9. MEXILETINE HCL [Concomitant]

REACTIONS (4)
  - DRUG INTERACTION [None]
  - ELECTROCARDIOGRAM QT CORRECTED INTERVAL PROLONGED [None]
  - PNEUMONIA [None]
  - VENTRICULAR TACHYCARDIA [None]
